FAERS Safety Report 12705882 (Version 1)
Quarter: 2016Q3

REPORT INFORMATION
  Report Type: Spontaneous
  Country: US (occurrence: US)
  Receive Date: 20160901
  Receipt Date: 20160901
  Transmission Date: 20161109
  Serious: No
  Sender: FDA-Public Use
  Company Number: US-TEVA-678847USA

PATIENT
  Sex: Female

DRUGS (9)
  1. HYDROXYZINE [Concomitant]
     Active Substance: HYDROXYZINE\HYDROXYZINE HYDROCHLORIDE
  2. ROBAXIN [Concomitant]
     Active Substance: METHOCARBAMOL
  3. DOXYCYCLIN [Concomitant]
     Active Substance: DOXYCYCLINE
  4. ADDERALL XR [Concomitant]
     Active Substance: AMPHETAMINE ASPARTATE\AMPHETAMINE SULFATE\DEXTROAMPHETAMINE SACCHARATE\DEXTROAMPHETAMINE SULFATE
  5. ULTRAN [Concomitant]
     Active Substance: PHENAGLYCODOL
  6. TERCONAZOLE. [Concomitant]
     Active Substance: TERCONAZOLE
  7. AMANTADINE [Concomitant]
     Active Substance: AMANTADINE
  8. LIDOCAINE. [Concomitant]
     Active Substance: LIDOCAINE
  9. COPAXONE [Suspect]
     Active Substance: GLATIRAMER ACETATE
     Indication: MULTIPLE SCLEROSIS
     Route: 058

REACTIONS (1)
  - Injection site reaction [Unknown]
